FAERS Safety Report 7277890-0 (Version None)
Quarter: 2011Q1

REPORT INFORMATION
  Report Type: 
  Country: None (occurrence: None)
  Receive Date: 20110207
  Receipt Date: 20110201
  Transmission Date: 20110831
  Serious: Yes (Life-Threatening, Hospitalization)
  Sender: FDA-Public Use
  Company Number: CA-ROCHE-736869

PATIENT
  Sex: Female
  Weight: 88.3 kg

DRUGS (7)
  1. TRASTUZUMAB [Suspect]
     Indication: BREAST CANCER
     Dosage: LOADING DOSE: 8 MG/KG TOTAL DOSE: 720 MG LAST DOSE PRIOR TO SAE: 13 OCTOBER 2010 FORM: VIALS
     Route: 042
     Dates: start: 20101013
  2. DOCETAXEL [Suspect]
     Dosage: TOTAL DOSE: 150 MG LAST DOSE PRIOR TO SAE: 13 OCTOBER 2010 FORM: VIALS
     Route: 042
     Dates: start: 20101013
  3. PERCOCET [Concomitant]
     Dates: start: 20100914
  4. LEVOTHYROXINE [Concomitant]
     Dates: start: 20060101
  5. BEVACIZUMAB [Suspect]
     Indication: BREAST CANCER
     Dosage: TOTAL DOSE: 1350 MG LAST DOSE PRIOR TO SAE: 13 OCTOBER 2010 FORM: VIALS
     Route: 042
     Dates: start: 20101013
  6. CARBOPLATIN [Suspect]
     Indication: BREAST CANCER
     Dosage: DOSE LEVEL: 6 AUC TOTAL DOSE: 810 MG LAST DOSE PRIOR TO SAE: 13 OCTOBER 2010 FORM: VIALS
     Route: 042
     Dates: start: 20101013
  7. NEXIUM [Concomitant]
     Dates: start: 20100914

REACTIONS (2)
  - FEBRILE NEUTROPENIA [None]
  - CAECITIS [None]
